FAERS Safety Report 12766741 (Version 1)
Quarter: 2016Q3

REPORT INFORMATION
  Report Type: Spontaneous
  Country: US (occurrence: US)
  Receive Date: 20160921
  Receipt Date: 20160921
  Transmission Date: 20161109
  Serious: Yes (Other)
  Sender: FDA-Public Use
  Company Number: US-ASTRAZENECA-2016SE97925

PATIENT
  Sex: Female

DRUGS (3)
  1. FASLODEX [Suspect]
     Active Substance: FULVESTRANT
     Route: 030
     Dates: start: 20160320, end: 20160620
  2. ARIMIDEX [Suspect]
     Active Substance: ANASTROZOLE
     Route: 048
     Dates: start: 20160320, end: 20160620
  3. IBRANCE [Suspect]
     Active Substance: PALBOCICLIB
     Route: 048
     Dates: start: 20160320, end: 20160620

REACTIONS (1)
  - Lung neoplasm malignant [Not Recovered/Not Resolved]
